FAERS Safety Report 11140023 (Version 2)
Quarter: 2016Q2

REPORT INFORMATION
  Report Type: Spontaneous
  Country: US (occurrence: US)
  Receive Date: 20150527
  Receipt Date: 20160523
  Transmission Date: 20160815
  Serious: No
  Sender: FDA-Public Use
  Company Number: US-ENDO PHARMACEUTICALS INC.-2015-000224

PATIENT
  Sex: Female
  Weight: 56.6 kg

DRUGS (1)
  1. SUPPRELIN LA [Suspect]
     Active Substance: HISTRELIN ACETATE
     Indication: PRODUCT USED FOR UNKNOWN INDICATION
     Route: 065
     Dates: start: 200907, end: 20150418

REACTIONS (2)
  - Incorrect drug administration duration [Not Recovered/Not Resolved]
  - Delayed menarche [Not Recovered/Not Resolved]
